FAERS Safety Report 11745699 (Version 1)
Quarter: 2015Q4

REPORT INFORMATION
  Report Type: Spontaneous
  Country: US (occurrence: US)
  Receive Date: 20151117
  Receipt Date: 20151117
  Transmission Date: 20160304
  Serious: Yes (Life-Threatening, Hospitalization, Other)
  Sender: FDA-Public Use
  Company Number: US-ACTAVIS-2015-24718

PATIENT
  Age: 19 Year
  Sex: Male

DRUGS (1)
  1. ALBUTEROL SULFATE (AMALLC) [Suspect]
     Active Substance: ALBUTEROL SULFATE
     Indication: ASTHMA
     Dosage: CONTINUOUS ALBUTEROL (}17.5MG HAD BEEN GIVEN)
     Route: 065

REACTIONS (3)
  - Lactic acidosis [Recovered/Resolved]
  - Influenza A virus test positive [None]
  - Respiratory failure [Recovered/Resolved]
